FAERS Safety Report 21652858 (Version 1)
Quarter: 2022Q4

REPORT INFORMATION
  Report Type: Spontaneous
  Country: US (occurrence: None)
  Receive Date: 20221125
  Receipt Date: 20221125
  Transmission Date: 20230112
  Serious: No
  Sender: FDA-Public Use
  Company Number: None

PATIENT
  Sex: Male
  Weight: 88.0 kg

DRUGS (16)
  1. BOSULIF [Suspect]
     Active Substance: BOSUTINIB MONOHYDRATE
     Indication: Chronic myeloid leukaemia
     Dosage: 300 MG DAILY ORAL?
     Route: 048
  2. AMLODIPINE [Concomitant]
     Active Substance: AMLODIPINE BESYLATE
  3. aspirin adult low strengths [Concomitant]
  4. ATORVASTATIN [Concomitant]
     Active Substance: ATORVASTATIN
  5. CETIRIZINE [Concomitant]
     Active Substance: CETIRIZINE HYDROCHLORIDE
  6. CLOPIDOGREL [Concomitant]
     Active Substance: CLOPIDOGREL BISULFATE
  7. CLOTRIMAZOLE [Concomitant]
  8. FUROSEMIDE [Concomitant]
  9. GLUCAGON [Concomitant]
     Active Substance: GLUCAGON
  10. LANTUS SOLOSTAR [Concomitant]
     Active Substance: INSULIN GLARGINE
  11. LOPERAMIDE [Concomitant]
  12. METOPROLOL [Concomitant]
  13. MONTELUKAST [Concomitant]
  14. NITROSTAT [Concomitant]
     Active Substance: NITROGLYCERIN
  15. ondanserron [Concomitant]
  16. POTASSIUM CHLORIDE [Concomitant]

REACTIONS (4)
  - Chest pain [None]
  - Cervical vertebral fracture [None]
  - Atrial fibrillation [None]
  - Amnesia [None]
